FAERS Safety Report 15258578 (Version 1)
Quarter: 2018Q3

REPORT INFORMATION
  Report Type: Spontaneous
  Country: DE (occurrence: DE)
  Receive Date: 20180809
  Receipt Date: 20180809
  Transmission Date: 20181010
  Serious: No
  Sender: FDA-Public Use
  Company Number: DE-HORMOSAN-2018-04089

PATIENT
  Sex: Female

DRUGS (2)
  1. PAROXETIN?HORMOSAN TROPFEN [Suspect]
     Active Substance: PAROXETINE MESYLATE
     Dosage: 2 MG, QD
     Route: 065
  2. PAROXETIN?HORMOSAN TROPFEN [Suspect]
     Active Substance: PAROXETINE MESYLATE
     Indication: DEPRESSION
     Dosage: 20 MG, QD
     Route: 065

REACTIONS (5)
  - Panic attack [Recovered/Resolved]
  - Malaise [Unknown]
  - Pain [Unknown]
  - Pruritus [Unknown]
  - Withdrawal syndrome [Unknown]
